FAERS Safety Report 24828318 (Version 1)
Quarter: 2025Q1

REPORT INFORMATION
  Report Type: Spontaneous
  Country: US (occurrence: US)
  Receive Date: 20250109
  Receipt Date: 20250109
  Transmission Date: 20250409
  Serious: No
  Sender: SANOFI AVENTIS
  Company Number: US-SA-2025SA006691

PATIENT
  Sex: Female
  Weight: 79.55 kg

DRUGS (3)
  1. DUPIXENT [Suspect]
     Active Substance: DUPILUMAB
     Indication: Dermatitis atopic
     Dosage: 300 MG, QOW
     Route: 058
  2. RETAINE PM [Concomitant]
     Active Substance: MINERAL OIL\PETROLATUM
  3. FLUOROMETHOLONE [Concomitant]
     Active Substance: FLUOROMETHOLONE

REACTIONS (4)
  - Malaise [Unknown]
  - Dizziness [Unknown]
  - Eye swelling [Unknown]
  - Headache [Unknown]
